FAERS Safety Report 15813116 (Version 1)
Quarter: 2019Q1

REPORT INFORMATION
  Report Type: Spontaneous
  Country: US (occurrence: US)
  Receive Date: 20190111
  Receipt Date: 20190111
  Transmission Date: 20190417
  Serious: No
  Sender: FDA-Public Use
  Company Number: US-SA-2019SA007033

PATIENT
  Age: 51 Year
  Sex: Female

DRUGS (18)
  1. DUPIXENT [Suspect]
     Active Substance: DUPILUMAB
     Indication: DERMATITIS ATOPIC
     Dosage: 300 MG, QOW
     Route: 058
     Dates: start: 20180925
  2. CETRIZINE [Concomitant]
     Active Substance: CETIRIZINE HYDROCHLORIDE
  3. TRIAMCINOLONE [Concomitant]
     Active Substance: TRIAMCINOLONE
  4. URSODIOL. [Concomitant]
     Active Substance: URSODIOL
  5. ANASTROZOLE. [Concomitant]
     Active Substance: ANASTROZOLE
  6. CLONAZEPAM. [Concomitant]
     Active Substance: CLONAZEPAM
  7. BUPROPION. [Concomitant]
     Active Substance: BUPROPION
  8. TIZANIDINE. [Concomitant]
     Active Substance: TIZANIDINE
  9. ADVAIR HFA [Concomitant]
     Active Substance: FLUTICASONE PROPIONATE\SALMETEROL XINAFOATE
  10. DESOXIMETASONE. [Concomitant]
     Active Substance: DESOXIMETASONE
  11. GENERLAC [Concomitant]
     Active Substance: LACTULOSE
  12. QUETIAPINE. [Concomitant]
     Active Substance: QUETIAPINE
  13. GABAPENTIN. [Concomitant]
     Active Substance: GABAPENTIN
  14. MONTELUKAST [Concomitant]
     Active Substance: MONTELUKAST SODIUM
  15. NEXIUM I.V. [Concomitant]
     Active Substance: ESOMEPRAZOLE SODIUM
  16. OXYCODONE [Concomitant]
     Active Substance: OXYCODONE
  17. NYSTOP [Concomitant]
     Active Substance: NYSTATIN
  18. VALACYCLOVIR [Concomitant]
     Active Substance: VALACYCLOVIR HYDROCHLORIDE

REACTIONS (7)
  - Rash pruritic [Not Recovered/Not Resolved]
  - Dry eye [Not Recovered/Not Resolved]
  - Skin reaction [Not Recovered/Not Resolved]
  - Eye pruritus [Not Recovered/Not Resolved]
  - Dry skin [Not Recovered/Not Resolved]
  - Lacrimation increased [Not Recovered/Not Resolved]
  - Wheezing [Not Recovered/Not Resolved]

NARRATIVE: CASE EVENT DATE: 20190103
